FAERS Safety Report 6728240-7 (Version None)
Quarter: 2010Q2

REPORT INFORMATION
  Report Type: 
  Country: None (occurrence: None)
  Receive Date: 20100517
  Receipt Date: 20100505
  Transmission Date: 20101027
  Serious: Yes (Other)
  Sender: FDA-Public Use
  Company Number: US-JNJFOC-20100503394

PATIENT
  Sex: Female

DRUGS (5)
  1. CHILDREN'S TYLENOL LIQUID BUBBLEGUM [Suspect]
     Route: 048
  2. CHILDREN'S TYLENOL LIQUID BUBBLEGUM [Suspect]
     Indication: CONJUNCTIVITIS
     Dosage: ^PER LABEL^
     Route: 048
  3. CHILDREN'S MOTRIN [Suspect]
     Route: 048
  4. CHILDREN'S MOTRIN [Suspect]
     Indication: CONJUNCTIVITIS
     Dosage: ^PER LABEL^
     Route: 048
  5. BENADRYL [Suspect]
     Indication: DRUG USE FOR UNKNOWN INDICATION
     Route: 065

REACTIONS (7)
  - BLOOD URINE PRESENT [None]
  - DIARRHOEA [None]
  - MALAISE [None]
  - NAUSEA [None]
  - PRODUCT QUALITY ISSUE [None]
  - PYREXIA [None]
  - VOMITING [None]
